FAERS Safety Report 4911641-7 (Version None)
Quarter: 2006Q1

REPORT INFORMATION
  Report Type: 
  Country: None (occurrence: None)
  Receive Date: 20060213
  Receipt Date: 20060130
  Transmission Date: 20060701
  Serious: Yes (Other)
  Sender: FDA-Public Use
  Company Number: HQWYE613801FEB06

PATIENT
  Age: 69 Year
  Sex: Female

DRUGS (4)
  1. PREMARIN [Suspect]
  2. CYCRIN [Suspect]
  3. MEDROXYPROGESTERONE [Suspect]
  4. PROVERA [Suspect]

REACTIONS (4)
  - BREAST CANCER IN SITU [None]
  - BREAST CANCER RECURRENT [None]
  - OESTROGEN RECEPTOR ASSAY POSITIVE [None]
  - PROGESTERONE RECEPTOR ASSAY POSITIVE [None]
